FAERS Safety Report 14312295 (Version 1)
Quarter: 2017Q4

REPORT INFORMATION
  Report Type: Spontaneous
  Country: US (occurrence: US)
  Receive Date: 20171220
  Receipt Date: 20171220
  Transmission Date: 20180321
  Serious: Yes (Hospitalization)
  Sender: FDA-Public Use
  Company Number: None

PATIENT
  Age: 63 Year
  Sex: Male
  Weight: 140.5 kg

DRUGS (3)
  1. DEXAMETHASONE. [Suspect]
     Active Substance: DEXAMETHASONE
     Dates: end: 20161121
  2. VELCADE [Suspect]
     Active Substance: BORTEZOMIB
     Dates: end: 20161115
  3. LENALIDOMIDE (CC-5013) [Suspect]
     Active Substance: LENALIDOMIDE
     Dates: end: 20170906

REACTIONS (5)
  - Pasteurella infection [None]
  - Animal scratch [None]
  - Meningitis [None]
  - Enterobacter infection [None]
  - Cervical vertebral fracture [None]

NARRATIVE: CASE EVENT DATE: 20170924
